FAERS Safety Report 22630782 (Version 4)
Quarter: 2024Q1

REPORT INFORMATION
  Report Type: Spontaneous
  Country: US (occurrence: US)
  Receive Date: 20230622
  Receipt Date: 20240206
  Transmission Date: 20240410
  Serious: No
  Sender: FDA-Public Use
  Company Number: US-PFIZER INC-202300222407

PATIENT
  Age: 89 Year
  Sex: Female
  Weight: 65.77 kg

DRUGS (10)
  1. VYNDAMAX [Suspect]
     Active Substance: TAFAMIDIS
     Indication: Myocardial infarction
     Dosage: 1 CAPSULE IN THE MORNING
     Route: 048
     Dates: start: 202204
  2. VYNDAMAX [Suspect]
     Active Substance: TAFAMIDIS
     Indication: Cerebrovascular accident
     Dosage: 61 MG, DAILY
     Dates: start: 202205, end: 20240103
  3. VYNDAMAX [Suspect]
     Active Substance: TAFAMIDIS
     Indication: Atrial fibrillation
  4. VYNDAMAX [Suspect]
     Active Substance: TAFAMIDIS
     Indication: Amyloidosis
  5. ELIQUIS [Concomitant]
     Active Substance: APIXABAN
     Dosage: UNK
  6. ATORVASTATIN [Concomitant]
     Active Substance: ATORVASTATIN
     Dosage: UNK
  7. PLAVIX [Concomitant]
     Active Substance: CLOPIDOGREL BISULFATE
     Dosage: UNK
  8. LASIX [Concomitant]
     Active Substance: FUROSEMIDE
     Dosage: UNK
  9. METOPROLOL SUCCINATE [Concomitant]
     Active Substance: METOPROLOL SUCCINATE
     Dosage: UNK
  10. ALDACTONE [Concomitant]
     Active Substance: SPIRONOLACTONE
     Dosage: UNK

REACTIONS (1)
  - Therapeutic product effect incomplete [Unknown]
